FAERS Safety Report 10216346 (Version 1)
Quarter: 2014Q2

REPORT INFORMATION
  Report Type: Spontaneous
  Country: US (occurrence: None)
  Receive Date: 20140603
  Receipt Date: 20140603
  Transmission Date: 20141212
  Serious: Yes (Hospitalization)
  Sender: FDA-Public Use
  Company Number: None

PATIENT
  Age: 41 Year
  Sex: Female
  Weight: 63.5 kg

DRUGS (3)
  1. METOCLOPRAMIDE [Suspect]
     Indication: GASTROOESOPHAGEAL REFLUX DISEASE
     Dosage: 1 PILL BEFORE MEALS TAKEN BY MOUTH
     Route: 048
  2. METOCLOPRAMIDE [Suspect]
     Indication: OESOPHAGITIS
     Dosage: 1 PILL BEFORE MEALS TAKEN BY MOUTH
     Route: 048
  3. METOCLOPRAMIDE [Suspect]
     Indication: GASTRITIS
     Dosage: 1 PILL BEFORE MEALS TAKEN BY MOUTH
     Route: 048

REACTIONS (11)
  - Feeling jittery [None]
  - Gastric disorder [None]
  - Gastritis [None]
  - Oesophagitis [None]
  - Hiatus hernia [None]
  - Gastric polyps [None]
  - Restlessness [None]
  - Anxiety [None]
  - Palpitations [None]
  - Depression [None]
  - Ill-defined disorder [None]
